FAERS Safety Report 6595420-3 (Version None)
Quarter: 2010Q1

REPORT INFORMATION
  Report Type: 
  Country: None (occurrence: None)
  Receive Date: 20100223
  Receipt Date: 20100218
  Transmission Date: 20100710
  Serious: Yes (Life-Threatening, Hospitalization, Disabling, Other)
  Sender: FDA-Public Use
  Company Number: BR-BAYER-200814377LA

PATIENT
  Age: 26 Year
  Sex: Female

DRUGS (6)
  1. BETAFERON [Suspect]
     Indication: MULTIPLE SCLEROSIS
     Dosage: UNIT DOSE: 8 MIU
     Route: 058
     Dates: start: 20060101, end: 20080520
  2. BETAFERON [Suspect]
     Dosage: UNIT DOSE: 8 MIU
     Route: 058
     Dates: start: 20080501
  3. BETAFERON [Suspect]
     Route: 058
  4. TEGRETOL [Concomitant]
     Indication: MUSCLE SPASMS
     Route: 048
     Dates: start: 20090501, end: 20090801
  5. HIDANTAL [Concomitant]
     Indication: CONVULSION
     Route: 048
     Dates: start: 20090701, end: 20090801
  6. OMEPRAZOLE [Concomitant]
     Indication: GASTRITIS
     Route: 048
     Dates: start: 20070101

REACTIONS (25)
  - ANAEMIA [None]
  - CHILLS [None]
  - CONVULSION [None]
  - DECREASED APPETITE [None]
  - DEPRESSION [None]
  - DYSSTASIA [None]
  - FALL [None]
  - HEMIPLEGIA [None]
  - HYPOTENSION [None]
  - INFLUENZA LIKE ILLNESS [None]
  - INJECTION SITE HAEMATOMA [None]
  - INJECTION SITE PAIN [None]
  - INJECTION SITE RASH [None]
  - MONOPLEGIA [None]
  - MOVEMENT DISORDER [None]
  - MULTIPLE SCLEROSIS [None]
  - MUSCULAR WEAKNESS [None]
  - NERVOUSNESS [None]
  - PAIN IN EXTREMITY [None]
  - QUADRIPLEGIA [None]
  - RETCHING [None]
  - SPEECH DISORDER [None]
  - SUICIDE ATTEMPT [None]
  - SYNCOPE [None]
  - WEIGHT DECREASED [None]
